FAERS Safety Report 12671427 (Version 7)
Quarter: 2017Q2

REPORT INFORMATION
  Report Type: Report from Study
  Country: PL (occurrence: PL)
  Receive Date: 20160822
  Receipt Date: 20170503
  Transmission Date: 20170830
  Serious: Yes (Hospitalization, Other)
  Sender: FDA-Public Use
  Company Number: PHHY2015PL168200

PATIENT
  Age: 79 Year
  Sex: Female
  Weight: 75 kg

DRUGS (1)
  1. TASIGNA [Suspect]
     Active Substance: NILOTINIB
     Indication: PRODUCT USED FOR UNKNOWN INDICATION
     Dosage: 400 MG, BID
     Route: 048
     Dates: start: 20110901

REACTIONS (18)
  - Palpitations [Unknown]
  - Hyperhidrosis [Unknown]
  - Feeling abnormal [Not Recovered/Not Resolved]
  - Arrhythmia [Recovering/Resolving]
  - Pallor [Unknown]
  - Alopecia [Unknown]
  - Dyspnoea [Unknown]
  - Blood pressure increased [Unknown]
  - International normalised ratio fluctuation [Unknown]
  - Troponin increased [Unknown]
  - Bronchitis [Recovering/Resolving]
  - Dyspnoea [Recovered/Resolved]
  - Asthenia [Unknown]
  - Atrial fibrillation [Recovered/Resolved]
  - Heart rate increased [Unknown]
  - Atrial fibrillation [Recovering/Resolving]
  - Dizziness [Unknown]
  - Chest pain [Unknown]

NARRATIVE: CASE EVENT DATE: 20151211
